FAERS Safety Report 24224573 (Version 1)
Quarter: 2024Q3

REPORT INFORMATION
  Report Type: Spontaneous
  Country: US (occurrence: US)
  Receive Date: 20240819
  Receipt Date: 20240819
  Transmission Date: 20241016
  Serious: Yes (Other)
  Sender: INSUD PHARMA
  Company Number: US-INSUD PHARMA-2408US06439

PATIENT

DRUGS (1)
  1. TESTOSTERONE [Suspect]
     Active Substance: TESTOSTERONE
     Indication: Transgender hormonal therapy
     Dosage: UNK
     Route: 065

REACTIONS (4)
  - Hormone receptor positive breast cancer [Unknown]
  - Intraductal proliferative breast lesion [Unknown]
  - Breast hyperplasia [Unknown]
  - Product use in unapproved indication [Unknown]
